FAERS Safety Report 4961038-9 (Version None)
Quarter: 2006Q1

REPORT INFORMATION
  Report Type: 
  Country: None (occurrence: None)
  Receive Date: 20060201
  Receipt Date: 20051130
  Transmission Date: 20060701
  Serious: No
  Sender: FDA-Public Use
  Company Number: 2005PV005355

PATIENT
  Age: 57 Year
  Sex: Female

DRUGS (6)
  1. BYETTA [Suspect]
     Indication: DIABETES MELLITUS NON-INSULIN-DEPENDENT
     Dosage: 10 MCG BID SC; 5 MCG BID SC
     Route: 058
     Dates: start: 20051018, end: 20051115
  2. BYETTA [Suspect]
     Indication: DIABETES MELLITUS NON-INSULIN-DEPENDENT
     Dosage: 10 MCG BID SC; 5 MCG BID SC
     Route: 058
     Dates: start: 20051116
  3. GLUCOTROL [Concomitant]
  4. SYNTHROID [Concomitant]
  5. ZYRTEC [Concomitant]
  6. ACTOS [Concomitant]

REACTIONS (5)
  - BLOOD GLUCOSE INCREASED [None]
  - INJECTION SITE HAEMORRHAGE [None]
  - INJECTION SITE PAIN [None]
  - NAUSEA [None]
  - WEIGHT DECREASED [None]
